FAERS Safety Report 6020422-5 (Version None)
Quarter: 2008Q4

REPORT INFORMATION
  Report Type: 
  Country: None (occurrence: None)
  Receive Date: 20081226
  Receipt Date: 20081216
  Transmission Date: 20090506
  Serious: Yes (Disabling)
  Sender: FDA-Public Use
  Company Number: US-BAYER-200840286NA

PATIENT
  Age: 56 Year
  Sex: Male

DRUGS (1)
  1. NEXAVAR [Suspect]
     Indication: HEPATIC NEOPLASM MALIGNANT
     Dosage: TOTAL DAILY DOSE: 800 MG  UNIT DOSE: 200 MG
     Route: 048
     Dates: start: 20081114, end: 20081212

REACTIONS (7)
  - ABASIA [None]
  - COUGH [None]
  - DERMATITIS [None]
  - DRY SKIN [None]
  - DYSPHONIA [None]
  - PAIN IN EXTREMITY [None]
  - SKIN HYPERTROPHY [None]
